FAERS Safety Report 12716861 (Version 5)
Quarter: 2017Q3

REPORT INFORMATION
  Report Type: Spontaneous
  Country: JP (occurrence: JP)
  Receive Date: 20160906
  Receipt Date: 20170728
  Transmission Date: 20171127
  Serious: Yes (Hospitalization, Other)
  Sender: FDA-Public Use
  Company Number: JP-BRISTOL-MYERS SQUIBB COMPANY-BMS-2001-000045

PATIENT
  Age: 64 Year
  Sex: Male

DRUGS (1)
  1. OPDIVO [Suspect]
     Active Substance: NIVOLUMAB
     Indication: NON-SMALL CELL LUNG CANCER RECURRENT
     Dosage: 3 MG/KG, UNK
     Route: 041
     Dates: start: 20160419, end: 20160628

REACTIONS (13)
  - Pyrexia [Recovered/Resolved]
  - Oral candidiasis [Unknown]
  - Gamma-glutamyltransferase increased [Unknown]
  - Rash [Unknown]
  - Alanine aminotransferase increased [Recovered/Resolved]
  - Bile duct stone [Recovered/Resolved]
  - Cholangitis [Recovered/Resolved]
  - Aspartate aminotransferase increased [Recovered/Resolved]
  - Amylase increased [Unknown]
  - Back pain [Unknown]
  - Bile duct stenosis [Recovered/Resolved]
  - Cholecystitis [Recovered/Resolved]
  - Nasopharyngitis [Unknown]

NARRATIVE: CASE EVENT DATE: 2016
